FAERS Safety Report 11944500 (Version 1)
Quarter: 2016Q1

REPORT INFORMATION
  Report Type: Spontaneous
  Country: US (occurrence: US)
  Receive Date: 20160125
  Receipt Date: 20160125
  Transmission Date: 20160526
  Serious: No
  Sender: FDA-Public Use
  Company Number: US-INVAGEN PHARMACEUTICALS, INC.-1046850

PATIENT
  Age: 80 Year
  Sex: Male
  Weight: 72.73 kg

DRUGS (11)
  1. ATENOLOL. [Concomitant]
     Active Substance: ATENOLOL
  2. FISH OIL [Concomitant]
     Active Substance: FISH OIL
  3. VITAMIN E [Concomitant]
     Active Substance: .ALPHA.-TOCOPHEROL
  4. NORVASC [Concomitant]
     Active Substance: AMLODIPINE BESYLATE
  5. MULTI VITAMIN AND MINERAL VITAMIN [Concomitant]
     Active Substance: .ALPHA.-TOCOPHEROL ACETATE, D-\ASCORBIC ACID\CALCIUM PANTOTHENATE\FOLIC ACID\MANGANESE\NIACINAMIDE\PYRIDOXINE\RIBOFLAVIN\THIAMINE\VITAMIN A\ZINC OXIDE
  6. GABAPENTIN. [Suspect]
     Active Substance: GABAPENTIN
     Indication: NEUROPATHY PERIPHERAL
     Route: 048
  7. VITAMIN C [Concomitant]
     Active Substance: ASCORBIC ACID
  8. PRAVASTATIN [Concomitant]
     Active Substance: PRAVASTATIN\PRAVASTATIN SODIUM
  9. CALCIUM [Concomitant]
     Active Substance: CALCIUM
  10. PROTONIX [Concomitant]
     Active Substance: PANTOPRAZOLE SODIUM
  11. LIVER SUPPLEMENT [Concomitant]
     Active Substance: PHENOL

REACTIONS (4)
  - Paraesthesia [Unknown]
  - Drug ineffective [Unknown]
  - Pain [None]
  - Drug dose omission [Unknown]
